FAERS Safety Report 16126820 (Version 1)
Quarter: 2019Q1

REPORT INFORMATION
  Report Type: Spontaneous
  Country: CN (occurrence: CN)
  Receive Date: 20190328
  Receipt Date: 20190328
  Transmission Date: 20190418
  Serious: Yes (Other)
  Sender: FDA-Public Use
  Company Number: CN-ROCHE-2285842

PATIENT
  Age: 71 Year
  Sex: Male

DRUGS (39)
  1. RITUXIMAB. [Suspect]
     Active Substance: RITUXIMAB
     Indication: DIFFUSE LARGE B-CELL LYMPHOMA
     Route: 065
     Dates: start: 20130717, end: 20131219
  2. RITUXIMAB. [Suspect]
     Active Substance: RITUXIMAB
     Route: 065
     Dates: start: 20140707, end: 20140801
  3. VINCRISTINE [Concomitant]
     Active Substance: VINCRISTINE
     Indication: B-CELL LYMPHOMA
     Route: 065
     Dates: start: 20130717, end: 20130919
  4. PREDNISONE. [Concomitant]
     Active Substance: PREDNISONE
     Indication: DIFFUSE LARGE B-CELL LYMPHOMA
     Route: 065
     Dates: start: 20130717, end: 201312
  5. OXALIPLATIN. [Concomitant]
     Active Substance: OXALIPLATIN
     Indication: B-CELL LYMPHOMA
     Route: 065
     Dates: start: 20140404, end: 20140527
  6. CISPLATIN. [Concomitant]
     Active Substance: CISPLATIN
     Route: 065
     Dates: start: 20150317, end: 20150324
  7. DACARBAZINE. [Concomitant]
     Active Substance: DACARBAZINE
     Route: 065
     Dates: start: 20150825, end: 20150930
  8. VINCRISTINE [Concomitant]
     Active Substance: VINCRISTINE
     Route: 065
     Dates: start: 20150825, end: 20150930
  9. DOXORUBICIN [Concomitant]
     Active Substance: DOXORUBICIN
     Route: 065
     Dates: start: 201310, end: 201312
  10. ETOPOSIDE. [Concomitant]
     Active Substance: ETOPOSIDE
     Route: 065
     Dates: start: 20140707, end: 20140801
  11. THALIDOMIDE [Concomitant]
     Active Substance: THALIDOMIDE
     Route: 065
     Dates: start: 20140903
  12. MABTHERA [Suspect]
     Active Substance: RITUXIMAB
     Indication: B-CELL LYMPHOMA
     Route: 065
     Dates: start: 20140612, end: 20140615
  13. ADRIAMYCIN [Concomitant]
     Active Substance: DOXORUBICIN HYDROCHLORIDE
     Indication: DIFFUSE LARGE B-CELL LYMPHOMA
     Route: 065
     Dates: start: 20130717, end: 201312
  14. ETOPOSIDE. [Concomitant]
     Active Substance: ETOPOSIDE
     Route: 065
     Dates: start: 20150514, end: 20150517
  15. BLEOMYCIN [Concomitant]
     Active Substance: BLEOMYCIN SULFATE
     Route: 065
     Dates: start: 20151015, end: 20160115
  16. THALIDOMIDE [Concomitant]
     Active Substance: THALIDOMIDE
     Indication: B-CELL LYMPHOMA
     Route: 048
  17. CYCLOPHOSPHAMIDE. [Concomitant]
     Active Substance: CYCLOPHOSPHAMIDE
     Indication: DIFFUSE LARGE B-CELL LYMPHOMA
     Route: 065
     Dates: start: 20130717, end: 201312
  18. CYCLOPHOSPHAMIDE. [Concomitant]
     Active Substance: CYCLOPHOSPHAMIDE
     Route: 065
     Dates: start: 201310, end: 201312
  19. PREDNISONE. [Concomitant]
     Active Substance: PREDNISONE
     Indication: B-CELL LYMPHOMA
     Route: 065
     Dates: start: 20130717, end: 20130919
  20. ETOPOSIDE. [Concomitant]
     Active Substance: ETOPOSIDE
     Route: 065
     Dates: start: 20140924, end: 20141213
  21. RITUXIMAB. [Suspect]
     Active Substance: RITUXIMAB
     Indication: B-CELL LYMPHOMA
     Route: 065
     Dates: start: 201310, end: 201312
  22. VINCRISTINE [Concomitant]
     Active Substance: VINCRISTINE
     Indication: DIFFUSE LARGE B-CELL LYMPHOMA
     Route: 065
     Dates: start: 20130717, end: 201312
  23. PREDNISONE. [Concomitant]
     Active Substance: PREDNISONE
     Route: 065
     Dates: start: 201310, end: 201312
  24. CISPLATIN. [Concomitant]
     Active Substance: CISPLATIN
     Route: 065
     Dates: start: 20140924, end: 20141213
  25. CYCLOPHOSPHAMIDE. [Concomitant]
     Active Substance: CYCLOPHOSPHAMIDE
     Indication: B-CELL LYMPHOMA
     Route: 065
     Dates: start: 20130717, end: 20130919
  26. ETOPOSIDE. [Concomitant]
     Active Substance: ETOPOSIDE
     Indication: B-CELL LYMPHOMA
     Route: 065
     Dates: start: 20140612, end: 20140615
  27. BLEOMYCIN [Concomitant]
     Active Substance: BLEOMYCIN SULFATE
     Indication: B-CELL LYMPHOMA
     Dosage: DAY 1
     Route: 065
     Dates: start: 20150715, end: 20150808
  28. PIRARUBICINE [Concomitant]
     Active Substance: PIRARUBICIN
     Indication: B-CELL LYMPHOMA
     Dosage: DAY 1
     Route: 065
  29. DACARBAZINE. [Concomitant]
     Active Substance: DACARBAZINE
     Indication: B-CELL LYMPHOMA
     Dosage: DAY2 AND DAY3
     Route: 065
     Dates: start: 20150715, end: 20150808
  30. VINCRISTINE [Concomitant]
     Active Substance: VINCRISTINE
     Route: 065
     Dates: start: 20151015, end: 20160115
  31. DOXORUBICIN [Concomitant]
     Active Substance: DOXORUBICIN
     Indication: B-CELL LYMPHOMA
     Route: 065
     Dates: start: 20130717, end: 20130919
  32. CISPLATIN. [Concomitant]
     Active Substance: CISPLATIN
     Indication: B-CELL LYMPHOMA
     Route: 065
     Dates: start: 20140612, end: 20140615
  33. CISPLATIN. [Concomitant]
     Active Substance: CISPLATIN
     Route: 065
     Dates: start: 20140707, end: 20140801
  34. PIRARUBICINE [Concomitant]
     Active Substance: PIRARUBICIN
     Route: 065
     Dates: start: 20150715, end: 20150808
  35. PIRARUBICINE [Concomitant]
     Active Substance: PIRARUBICIN
     Route: 065
     Dates: start: 20150825, end: 20150930
  36. DACARBAZINE. [Concomitant]
     Active Substance: DACARBAZINE
     Route: 065
     Dates: start: 20151015, end: 20160115
  37. VINCRISTINE [Concomitant]
     Active Substance: VINCRISTINE
     Route: 065
     Dates: start: 201310, end: 201312
  38. GEMCITABINE [Concomitant]
     Active Substance: GEMCITABINE\GEMCITABINE HYDROCHLORIDE
     Indication: B-CELL LYMPHOMA
     Route: 065
     Dates: start: 20140404, end: 20140527
  39. ETOPOSIDE. [Concomitant]
     Active Substance: ETOPOSIDE
     Dosage: 100 MG/D
     Route: 065
     Dates: start: 20150317, end: 20150324

REACTIONS (7)
  - Asthenia [Recovering/Resolving]
  - Hypoaesthesia [Unknown]
  - Bone marrow failure [Unknown]
  - Immune system disorder [Unknown]
  - Drug ineffective [Unknown]
  - Herpes zoster [Recovered/Resolved]
  - Hypoaesthesia [Recovering/Resolving]
